FAERS Safety Report 8821846 (Version 2)
Quarter: 2012Q4

REPORT INFORMATION
  Report Type: 
  Country: JP (occurrence: JP)
  Receive Date: 20121002
  Receipt Date: 20121108
  Transmission Date: 20130627
  Serious: Yes (Death)
  Sender: FDA-Public Use
  Company Number: JP-AMGEN-JPNSP2012061295

PATIENT
  Age: 68 Year
  Sex: Male
  Weight: 69 kg

DRUGS (4)
  1. VECTIBIX [Suspect]
     Indication: LARGE INTESTINE CARCINOMA
     Dosage: 400 mg, q2wk
     Route: 042
     Dates: start: 20120730, end: 20120730
  2. 5 FU [Suspect]
     Indication: LARGE INTESTINE CARCINOMA
     Dosage: 500 mg, q2wk
     Route: 042
     Dates: start: 20120709, end: 20120730
  3. TOPOTECIN [Concomitant]
     Indication: LARGE INTESTINE CARCINOMA
     Dosage: 200 mg, q2wk
     Route: 042
     Dates: start: 20120730, end: 20120730
  4. LEUCOVORIN [Concomitant]
     Indication: LARGE INTESTINE CARCINOMA
     Dosage: 350 mg, q2wk
     Route: 042
     Dates: start: 20120709, end: 20120730

REACTIONS (1)
  - Interstitial lung disease [Fatal]
